FAERS Safety Report 23604805 (Version 1)
Quarter: 2024Q1

REPORT INFORMATION
  Report Type: Spontaneous
  Country: CN (occurrence: CN)
  Receive Date: 20240307
  Receipt Date: 20240307
  Transmission Date: 20240410
  Serious: Yes (Other)
  Sender: FDA-Public Use
  Company Number: None

PATIENT
  Sex: Female

DRUGS (14)
  1. PREDNISOLONE [Suspect]
     Active Substance: PREDNISOLONE
     Indication: Angioimmunoblastic T-cell lymphoma stage IV
     Dosage: UNK
     Route: 065
     Dates: start: 202112, end: 202206
  2. PREDNISOLONE [Suspect]
     Active Substance: PREDNISOLONE
     Indication: Metastases to skin
     Dosage: UNK
     Route: 065
     Dates: start: 202112, end: 202206
  3. PREDNISOLONE [Suspect]
     Active Substance: PREDNISOLONE
     Indication: Metastases to lymph nodes
     Dosage: 500 MILLIGRAM, CYCLICAL (100 MG/DAY, DAYS 1-5) (CMOP REGIMEN)
     Route: 065
     Dates: start: 202202, end: 202207
  4. DOXORUBICIN [Suspect]
     Active Substance: DOXORUBICIN
     Indication: Angioimmunoblastic T-cell lymphoma stage IV
     Dosage: UNK
     Route: 065
     Dates: start: 202112, end: 202206
  5. DOXORUBICIN [Suspect]
     Active Substance: DOXORUBICIN
     Dosage: UNK
     Route: 065
     Dates: start: 202112, end: 202206
  6. CYCLOPHOSPHAMIDE [Suspect]
     Active Substance: CYCLOPHOSPHAMIDE
     Indication: Angioimmunoblastic T-cell lymphoma stage IV
     Dosage: UNK
     Route: 065
     Dates: start: 202112, end: 202206
  7. CYCLOPHOSPHAMIDE [Suspect]
     Active Substance: CYCLOPHOSPHAMIDE
     Indication: Metastases to lymph nodes
     Dosage: UNK
     Route: 065
     Dates: start: 202112, end: 202206
  8. CYCLOPHOSPHAMIDE [Suspect]
     Active Substance: CYCLOPHOSPHAMIDE
     Indication: Metastases to skin
     Dosage: 640 MILLIGRAM/SQ. METER, CYCLICAL (640 MG/M2, DAY 1) (CMOP REGIMEN)
     Route: 065
     Dates: start: 202206, end: 202207
  9. VINCRISTINE [Suspect]
     Active Substance: VINCRISTINE
     Indication: Angioimmunoblastic T-cell lymphoma stage IV
     Dosage: UNK
     Route: 065
     Dates: start: 202112, end: 202206
  10. VINCRISTINE [Suspect]
     Active Substance: VINCRISTINE
     Indication: Metastases to lymph nodes
     Dosage: UNK
     Route: 065
     Dates: start: 202112, end: 202206
  11. VINCRISTINE [Suspect]
     Active Substance: VINCRISTINE
     Indication: Metastases to skin
     Dosage: 3 MILLIGRAM/SQ. METER, CYCLICAL (3 MG/M2, DAY 1) (CMOP REGIMEN)
     Route: 065
     Dates: start: 202202, end: 202207
  12. MITOXANTRONE HYDROCHLORIDE [Suspect]
     Active Substance: MITOXANTRONE HYDROCHLORIDE
     Indication: Angioimmunoblastic T-cell lymphoma stage IV
     Dosage: 18 MILLIGRAM/SQ. METER, CYCLICAL (18 MG/M2, DAY 1) (CMOP REGIMEN) (LIPOSOME)
     Route: 065
     Dates: start: 202202, end: 202207
  13. MITOXANTRONE HYDROCHLORIDE [Suspect]
     Active Substance: MITOXANTRONE HYDROCHLORIDE
     Indication: Metastases to lymph nodes
  14. MITOXANTRONE HYDROCHLORIDE [Suspect]
     Active Substance: MITOXANTRONE HYDROCHLORIDE
     Indication: Metastases to skin

REACTIONS (5)
  - Sinus node dysfunction [Unknown]
  - Atrial fibrillation [Unknown]
  - Haematotoxicity [Recovered/Resolved]
  - Skin hyperpigmentation [Recovered/Resolved]
  - Nausea [Unknown]

NARRATIVE: CASE EVENT DATE: 20220101
